FAERS Safety Report 6431396-7 (Version None)
Quarter: 2009Q4

REPORT INFORMATION
  Report Type: 
  Country: None (occurrence: None)
  Receive Date: 20091106
  Receipt Date: 20091028
  Transmission Date: 20100525
  Serious: Yes (Hospitalization)
  Sender: FDA-Public Use
  Company Number: PHHY2009DE48067

PATIENT
  Age: 14 Year
  Sex: Female

DRUGS (2)
  1. METHYLPHENIDATE HCL [Suspect]
  2. ATOMOXETINE HCL [Suspect]

REACTIONS (2)
  - AGITATION [None]
  - CONFUSIONAL STATE [None]
